FAERS Safety Report 4451594-1 (Version None)
Quarter: 2004Q3

REPORT INFORMATION
  Report Type: 
  Country: None (occurrence: None)
  Receive Date: 20040915
  Receipt Date: 20040901
  Transmission Date: 20050211
  Serious: Yes (Hospitalization)
  Sender: FDA-Public Use
  Company Number: 2004050247

PATIENT
  Age: 80 Year
  Sex: Male

DRUGS (3)
  1. LIPITOR [Suspect]
     Indication: HYPERLIPIDAEMIA
     Dosage: 5 MG (1 IN 1 D), ORAL
     Route: 048
     Dates: start: 20040201, end: 20040720
  2. ALENDRONATE SODIUM [Concomitant]
  3. TANZYPAN (ENZYMES NOS) [Concomitant]

REACTIONS (2)
  - DELIRIUM [None]
  - RHABDOMYOLYSIS [None]
